FAERS Safety Report 11779386 (Version 1)
Quarter: 2015Q4

REPORT INFORMATION
  Report Type: Spontaneous
  Country: BR (occurrence: BR)
  Receive Date: 20151125
  Receipt Date: 20151125
  Transmission Date: 20160304
  Serious: Yes (Hospitalization)
  Sender: FDA-Public Use
  Company Number: BR-PFIZER INC-2015403124

PATIENT
  Age: 60 Year
  Sex: Female
  Weight: 59 kg

DRUGS (3)
  1. LIPITOR [Suspect]
     Active Substance: ATORVASTATIN CALCIUM
     Dosage: UNK
  2. AAS [Concomitant]
     Active Substance: ASPIRIN
     Dosage: UNK
  3. ARA 2 [Concomitant]
     Dosage: UNK

REACTIONS (2)
  - Infarction [Unknown]
  - Memory impairment [Unknown]

NARRATIVE: CASE EVENT DATE: 201511
